FAERS Safety Report 24709151 (Version 2)
Quarter: 2024Q4

REPORT INFORMATION
  Report Type: Report from Study
  Country: CO (occurrence: CO)
  Receive Date: 20241208
  Receipt Date: 20241225
  Transmission Date: 20250115
  Serious: Yes (Hospitalization)
  Sender: JOHNSON AND JOHNSON
  Company Number: CO-JNJFOC-20241200320

PATIENT
  Age: 68 Year
  Sex: Female
  Weight: 60 kg

DRUGS (10)
  1. INVEGA SUSTENNA [Suspect]
     Active Substance: PALIPERIDONE PALMITATE
     Indication: Schizophrenia
     Dosage: LAST DATE OF APPLICATION WAS ON 29-NOV-2024
     Route: 030
     Dates: start: 20230913
  2. INVEGA SUSTENNA [Suspect]
     Active Substance: PALIPERIDONE PALMITATE
  3. INVEGA SUSTENNA [Suspect]
     Active Substance: PALIPERIDONE PALMITATE
  4. VALPROIC ACID [Concomitant]
     Active Substance: VALPROIC ACID
  5. OLANZAPINE [Concomitant]
     Active Substance: OLANZAPINE
  6. ESOMEPRAZOLE [Concomitant]
     Active Substance: ESOMEPRAZOLE
  7. BISACODYL [Concomitant]
     Active Substance: BISACODYL
  8. ACETAMINOPHEN [Concomitant]
     Active Substance: ACETAMINOPHEN
  9. CARBAMAZEPINE [Concomitant]
     Active Substance: CARBAMAZEPINE
  10. CLOZAPINE [Concomitant]
     Active Substance: CLOZAPINE

REACTIONS (1)
  - Pneumonia [Recovering/Resolving]

NARRATIVE: CASE EVENT DATE: 20241118
